FAERS Safety Report 6997981-9 (Version None)
Quarter: 2010Q3

REPORT INFORMATION
  Report Type: 
  Country: None (occurrence: None)
  Receive Date: 20100920
  Receipt Date: 20091201
  Transmission Date: 20110219
  Serious: No
  Sender: FDA-Public Use
  Company Number: US-ASTRAZENECA-2006UW08236

PATIENT
  Age: 14558 Day
  Sex: Female
  Weight: 154.2 kg

DRUGS (5)
  1. SEROQUEL [Suspect]
     Indication: BIPOLAR I DISORDER
     Route: 048
     Dates: start: 20040101, end: 20080101
  2. CLOZARIL [Concomitant]
     Dates: start: 20010101
  3. HALDOL [Concomitant]
     Dates: start: 20000101
  4. RISPERDAL [Concomitant]
     Dates: start: 19980101
  5. THORAZINE [Concomitant]
     Dates: start: 19980101, end: 19990101

REACTIONS (4)
  - ARTHRITIS [None]
  - HYPERLIPIDAEMIA [None]
  - OBESITY [None]
  - TYPE 2 DIABETES MELLITUS [None]
